FAERS Safety Report 9979105 (Version 1)
Quarter: 2014Q1

REPORT INFORMATION
  Report Type: Report from Study
  Country: US (occurrence: US)
  Receive Date: 20140306
  Receipt Date: 20140306
  Transmission Date: 20141002
  Serious: No
  Sender: FDA-Public Use
  Company Number: US-ABBVIE-13P-163-1169514-00

PATIENT
  Age: 18 Year
  Sex: Male
  Weight: 86.26 kg

DRUGS (2)
  1. HUMIRA [Suspect]
     Indication: CROHN^S DISEASE
     Dates: start: 201110, end: 201206
  2. SULFASALAZINE [Concomitant]
     Indication: ARTHRALGIA

REACTIONS (3)
  - Arthralgia [Not Recovered/Not Resolved]
  - Juvenile idiopathic arthritis [Not Recovered/Not Resolved]
  - Back pain [Not Recovered/Not Resolved]
